FAERS Safety Report 9357919 (Version 2)
Quarter: 2013Q4

REPORT INFORMATION
  Report Type: Report from Study
  Country: NL (occurrence: NL)
  Receive Date: 20130620
  Receipt Date: 20131119
  Transmission Date: 20140711
  Serious: Yes (Hospitalization, Other)
  Sender: FDA-Public Use
  Company Number: NL-ROCHE-1237101

PATIENT
  Age: 45 Year
  Sex: Female

DRUGS (1)
  1. HERCEPTIN [Suspect]
     Indication: BREAST CANCER
     Dosage: LAST ADMINISTRATION: 08/MAY/2013
     Route: 042

REACTIONS (9)
  - Myocardial infarction [Unknown]
  - Skin disorder [Unknown]
  - Nail disorder [Unknown]
  - Nausea [Unknown]
  - Asthenia [Unknown]
  - Fatigue [Unknown]
  - Ejection fraction decreased [Unknown]
  - Respiratory tract infection [Unknown]
  - Pneumonia [Unknown]
